FAERS Safety Report 23052978 (Version 1)
Quarter: 2023Q4

REPORT INFORMATION
  Report Type: Spontaneous
  Country: US (occurrence: US)
  Receive Date: 20231011
  Receipt Date: 20231011
  Transmission Date: 20240105
  Serious: Yes (Hospitalization)
  Sender: FDA-Public Use
  Company Number: US-ELI_LILLY_AND_COMPANY-US202310003833

PATIENT
  Age: 55 Year
  Sex: Female

DRUGS (1)
  1. MOUNJARO [Suspect]
     Active Substance: TIRZEPATIDE
     Indication: Polycystic ovarian syndrome
     Dosage: UNK UNK, UNKNOWN
     Route: 065

REACTIONS (2)
  - Impaired gastric emptying [Recovered/Resolved]
  - Off label use [Unknown]
